FAERS Safety Report 11319707 (Version 1)
Quarter: 2015Q3

REPORT INFORMATION
  Report Type: Spontaneous
  Country: US (occurrence: US)
  Receive Date: 20150729
  Receipt Date: 20150729
  Transmission Date: 20151125
  Serious: Yes (Other)
  Sender: FDA-Public Use
  Company Number: US-BAYER-2015-382653

PATIENT
  Age: 42 Year
  Sex: Male

DRUGS (2)
  1. KOGENATE FS [Suspect]
     Active Substance: ANTIHEMOPHILIC FACTOR, HUMAN RECOMBINANT
     Indication: FACTOR VIII DEFICIENCY
     Dosage: 2000 U, Q 12 HRS TOTAL OF 1-2 DOSES PRN BLEEDS
     Route: 042
     Dates: start: 201006
  2. KOGENATE FS [Suspect]
     Active Substance: ANTIHEMOPHILIC FACTOR, HUMAN RECOMBINANT
     Indication: FACTOR VIII DEFICIENCY
     Dosage: 2000 U, Q 12 HRS TOTAL OF 1-2 DOSES PRN BLEEDS
     Route: 042
     Dates: start: 201006

REACTIONS (3)
  - Haemarthrosis [None]
  - Muscle haemorrhage [None]
  - Dental operation [None]
